FAERS Safety Report 9813972 (Version 1)
Quarter: 2014Q1

REPORT INFORMATION
  Report Type: Spontaneous
  Country: US (occurrence: US)
  Receive Date: 20140113
  Receipt Date: 20140113
  Transmission Date: 20141002
  Serious: Yes (Other)
  Sender: FDA-Public Use
  Company Number: PHHY2014US002220

PATIENT
  Age: 51 Year
  Sex: Female

DRUGS (25)
  1. OXALIPLATIN [Suspect]
     Indication: METASTASES TO LIVER
     Dosage: 140 MG/M2, UNK
     Route: 041
  2. OXALIPLATIN [Suspect]
     Indication: METASTASES TO LUNG
  3. OXALIPLATIN [Suspect]
     Indication: COLORECTAL CANCER
  4. 5-FLUOROURACIL [Suspect]
     Indication: METASTASES TO LIVER
     Dosage: 325 MG/M2, UNK
     Route: 042
  5. 5-FLUOROURACIL [Suspect]
     Indication: METASTASES TO LUNG
  6. 5-FLUOROURACIL [Suspect]
     Indication: COLORECTAL CANCER
  7. LEUCOVORIN CALCIUM [Suspect]
     Indication: METASTASES TO LIVER
     Dosage: 200 MG/M2, UNK
  8. LEUCOVORIN CALCIUM [Suspect]
     Indication: METASTASES TO LUNG
  9. LEUCOVORIN CALCIUM [Suspect]
     Indication: COLORECTAL CANCER
  10. BEVACIZUMAB [Suspect]
     Indication: METASTASES TO LIVER
     Dosage: 10 MG/KG, UNK
  11. BEVACIZUMAB [Suspect]
     Indication: METASTASES TO LUNG
  12. BEVACIZUMAB [Suspect]
     Indication: COLORECTAL CANCER
  13. CETUXIMAB [Suspect]
     Indication: METASTASES TO LIVER
     Dosage: 125 MG/M2, UNK
  14. CETUXIMAB [Suspect]
     Indication: METASTASES TO LUNG
  15. CETUXIMAB [Suspect]
     Indication: COLORECTAL CANCER
  16. ALPRAZOLAM [Concomitant]
  17. BUPROPION [Concomitant]
  18. DICYCLOMINE [Concomitant]
  19. ESOMEPRAZOLE [Concomitant]
  20. IRBESARTAN HYDROCHLOROTHIAZIDE [Concomitant]
  21. LEVOTHYROXINE [Concomitant]
  22. NAPROXEN [Concomitant]
  23. PROCHLORPERAZINE [Concomitant]
  24. ROPINIROLE [Concomitant]
  25. TRAZODONE [Concomitant]

REACTIONS (2)
  - Hyperbilirubinaemia [Recovered/Resolved]
  - Malignant neoplasm progression [Unknown]
